FAERS Safety Report 4603995-6 (Version None)
Quarter: 2005Q1

REPORT INFORMATION
  Report Type: 
  Country: None (occurrence: None)
  Receive Date: 20050308
  Receipt Date: 20050224
  Transmission Date: 20050727
  Serious: Yes (Life-Threatening)
  Sender: FDA-Public Use
  Company Number: 05H-163-0292286-00

PATIENT
  Sex: Female

DRUGS (1)
  1. LIDOCAINE 1% INJ [Suspect]
     Indication: ANAESTHESIA
     Dosage: 2 CC, ONCE, INJECTION
     Dates: start: 20050101, end: 20050101

REACTIONS (2)
  - ANAESTHETIC COMPLICATION [None]
  - ANAPHYLACTIC SHOCK [None]
